FAERS Safety Report 13594271 (Version 6)
Quarter: 2017Q3

REPORT INFORMATION
  Report Type: Report from Study
  Country: US (occurrence: US)
  Receive Date: 20170530
  Receipt Date: 20170928
  Transmission Date: 20171127
  Serious: Yes (Hospitalization)
  Sender: FDA-Public Use
  Company Number: US-ACTELION-A-NJ2017-154498

PATIENT
  Age: 56 Year
  Sex: Female
  Weight: 82.54 kg

DRUGS (6)
  1. VELETRI [Suspect]
     Active Substance: EPOPROSTENOL
     Indication: PULMONARY ARTERIAL HYPERTENSION
     Dosage: 4.5 NG/KG, PER MIN
     Route: 042
     Dates: start: 201705
  2. ELIQUIS [Concomitant]
     Active Substance: APIXABAN
  3. ADCIRCA [Concomitant]
     Active Substance: TADALAFIL
  4. VELETRI [Suspect]
     Active Substance: EPOPROSTENOL
     Dosage: 7 NG/KG, PER MIN
     Route: 042
  5. TRACLEER [Suspect]
     Active Substance: BOSENTAN
     Indication: PULMONARY ARTERIAL HYPERTENSION
     Dosage: 125 MG, BID
     Route: 048
  6. TYVASO [Concomitant]
     Active Substance: TREPROSTINIL

REACTIONS (15)
  - Pulmonary hypertension [Unknown]
  - Condition aggravated [Unknown]
  - Migraine [Unknown]
  - Peripheral swelling [Unknown]
  - Nasal congestion [Unknown]
  - Nausea [Unknown]
  - Sensitivity of teeth [Unknown]
  - Muscle spasms [Unknown]
  - First bite syndrome [Unknown]
  - Myalgia [Unknown]
  - Headache [Unknown]
  - Diarrhoea [Unknown]
  - Application site irritation [Recovering/Resolving]
  - Pain in jaw [Unknown]
  - Anxiety [Not Recovered/Not Resolved]
